FAERS Safety Report 9347068 (Version 1)
Quarter: 2013Q2

REPORT INFORMATION
  Report Type: Spontaneous
  Country: US (occurrence: US)
  Receive Date: 20130613
  Receipt Date: 20130613
  Transmission Date: 20140414
  Serious: Yes (Hospitalization)
  Sender: FDA-Public Use
  Company Number: US-ELI_LILLY_AND_COMPANY-US201306000506

PATIENT
  Age: 68 Year
  Sex: Female
  Weight: 86.17 kg

DRUGS (1)
  1. HUMALOG LISPRO [Suspect]
     Route: 058

REACTIONS (5)
  - Blood glucose increased [Recovering/Resolving]
  - Chest pain [Unknown]
  - Hyperhidrosis [Unknown]
  - Cold sweat [Unknown]
  - Blood glucose increased [Unknown]
